FAERS Safety Report 5372135-0 (Version None)
Quarter: 2007Q2

REPORT INFORMATION
  Report Type: 
  Country: None (occurrence: None)
  Receive Date: 20070615
  Receipt Date: 20070309
  Transmission Date: 20071010
  Serious: No
  Sender: FDA-Public Use
  Company Number: SP01162

PATIENT
  Age: 79 Year
  Sex: Female
  Weight: 65.7716 kg

DRUGS (1)
  1. XIFAXAN [Suspect]
     Indication: IRRITABLE BOWEL SYNDROME
     Dosage: 600 MG (200 MG, 1 IN 8 HR), ORAL
     Route: 048
     Dates: start: 20070308, end: 20070308

REACTIONS (3)
  - FEELING ABNORMAL [None]
  - HEADACHE [None]
  - PUBIC PAIN [None]
